FAERS Safety Report 8013450-1 (Version None)
Quarter: 2011Q4

REPORT INFORMATION
  Report Type: 
  Country: None (occurrence: None)
  Receive Date: 20111229
  Receipt Date: 20111228
  Transmission Date: 20120403
  Serious: Yes (Other)
  Sender: FDA-Public Use
  Company Number: IT-PFIZER INC-2011309877

PATIENT
  Age: 81 Year
  Sex: Male

DRUGS (3)
  1. VALPRESSION [Concomitant]
     Indication: HYPERTENSION
     Dosage: 160 MG, UNK
  2. TOVIAZ [Suspect]
     Indication: HYPERTONIC BLADDER
     Dosage: 4 MG, 1X/DAY
     Route: 048
     Dates: start: 20111018, end: 20111018
  3. REPAGLINIDE [Concomitant]
     Indication: TYPE 2 DIABETES MELLITUS
     Dosage: 1 MG, UNK

REACTIONS (4)
  - RENAL FAILURE [None]
  - POLLAKIURIA [None]
  - MICTURITION URGENCY [None]
  - DYSURIA [None]
